FAERS Safety Report 6633921-X (Version None)
Quarter: 2010Q1

REPORT INFORMATION
  Report Type: 
  Country: None (occurrence: None)
  Receive Date: 20100309
  Receipt Date: 20100225
  Transmission Date: 20100710
  Serious: Yes (Life-Threatening, Hospitalization)
  Sender: FDA-Public Use
  Company Number: 2006-01756

PATIENT
  Age: 61 Year
  Sex: Male
  Weight: 86 kg

DRUGS (11)
  1. VELCADE [Suspect]
     Indication: T-CELL LYMPHOMA
     Dosage: 3.00 MG
     Dates: start: 20060623, end: 20060627
  2. VELCADE [Suspect]
     Indication: T-CELL LYMPHOMA
     Dosage: 3.00 MG
     Dates: start: 20060713
  3. PREDNISONE [Suspect]
     Indication: T-CELL LYMPHOMA
     Dosage: 120.00 MG
     Dates: start: 20060623, end: 20060627
  4. PREDNISONE [Suspect]
     Indication: T-CELL LYMPHOMA
     Dosage: 120.00 MG
     Dates: start: 20060713
  5. CYCLOPHOSPHAMIDE [Suspect]
     Indication: T-CELL LYMPHOMA
     Dosage: 2400.00 MG
     Dates: start: 20060623, end: 20060623
  6. CYCLOPHOSPHAMIDE [Suspect]
     Indication: T-CELL LYMPHOMA
     Dosage: 2400.00 MG
     Dates: start: 20060713
  7. DOXIL [Suspect]
     Indication: T-CELL LYMPHOMA
     Dosage: 150.00 MG
     Dates: start: 20060623, end: 20060623
  8. ELDISINE [Suspect]
     Indication: T-CELL LYMPHOMA
     Dosage: 4.00 MG
     Dates: start: 20060623, end: 20060627
  9. BLEOMYCIN SULFATE [Suspect]
     Indication: T-CELL LYMPHOMA
     Dosage: 10.00  LU,
     Dates: start: 20070623, end: 20070627
  10. GRANOCYTE 13-34 (LENOGRASTIM) INJECTION [Suspect]
     Indication: T-CELL LYMPHOMA
     Dosage: 33.6 UG
     Dates: start: 20060628, end: 20060630
  11. GRANOCYTE 13-34 (LENOGRASTIM) INJECTION [Suspect]
     Indication: T-CELL LYMPHOMA
     Dosage: 33.6 UG
     Dates: start: 20060713

REACTIONS (2)
  - INAPPROPRIATE ANTIDIURETIC HORMONE SECRETION [None]
  - PITUITARY TUMOUR BENIGN [None]
